FAERS Safety Report 7196303-0 (Version None)
Quarter: 2010Q4

REPORT INFORMATION
  Report Type: 
  Country: None (occurrence: None)
  Receive Date: 20101223
  Receipt Date: 20101020
  Transmission Date: 20110411
  Serious: No
  Sender: FDA-Public Use
  Company Number: US-AMGEN-USASP2010002072

PATIENT

DRUGS (6)
  1. ENBREL [Suspect]
     Indication: PRODUCT USED FOR UNKNOWN INDICATION
     Dosage: 50 MG, QWK
     Route: 058
  2. CEFUROXIME [Concomitant]
     Dosage: 7.5 MG, UNK
     Route: 030
  3. NASONEX [Concomitant]
     Dosage: 50 UNK, UNK
  4. ATENOLOL [Concomitant]
     Dosage: 50 MG, UNK
  5. FLUOXETINE [Concomitant]
     Dosage: 10 MG, UNK
  6. VITAMIN A [Concomitant]
     Dosage: 250 MG, UNK

REACTIONS (2)
  - SINUSITIS [None]
  - VERTIGO [None]
